FAERS Safety Report 12608455 (Version 2)
Quarter: 2016Q3

REPORT INFORMATION
  Report Type: Report from Study
  Country: GB (occurrence: GB)
  Receive Date: 20160729
  Receipt Date: 20160914
  Transmission Date: 20161109
  Serious: Yes (Disabling)
  Sender: FDA-Public Use
  Company Number: PHFR2016GB005482

PATIENT
  Age: 41 Year
  Sex: Female

DRUGS (1)
  1. GILENYA [Suspect]
     Active Substance: FINGOLIMOD HYDROCHLORIDE
     Indication: MULTIPLE SCLEROSIS
     Dosage: 0.5 MG, OD
     Route: 048
     Dates: start: 20141013, end: 20160530

REACTIONS (13)
  - Pain [Unknown]
  - Drug ineffective [Unknown]
  - Labyrinthitis [Unknown]
  - Multiple sclerosis relapse [Unknown]
  - Cystitis [Unknown]
  - Headache [Recovering/Resolving]
  - Fatigue [Unknown]
  - Insomnia [Unknown]
  - Pruritus generalised [Unknown]
  - Dizziness [Unknown]
  - Facial paresis [Unknown]
  - Balance disorder [Unknown]
  - Lymphocyte count decreased [Unknown]

NARRATIVE: CASE EVENT DATE: 20141013
